FAERS Safety Report 8573320-7 (Version None)
Quarter: 2012Q2

REPORT INFORMATION
  Report Type: 
  Country: None (occurrence: None)
  Receive Date: 20120423
  Receipt Date: 20090806
  Transmission Date: 20120825
  Serious: Yes (Hospitalization, Other)
  Sender: FDA-Public Use
  Company Number: PHEH2009US07070

PATIENT
  Age: 66 Year
  Sex: Female

DRUGS (5)
  1. EXJADE (*CGP 72670') DISPERSIBLE TABLET ; EXJADE REGIMEN # 2 [Suspect]
     Indication: BLOOD DISORDER
     Dosage: 1250 MG, QD, ORAL ; 750 MG, QD, ORAL
     Route: 048
  2. EXJADE (*CGP 72670') DISPERSIBLE TABLET ; EXJADE REGIMEN # 2 [Suspect]
     Indication: LYMPHATIC DISORDER
     Dosage: 1250 MG, QD, ORAL ; 750 MG, QD, ORAL
     Route: 048
  3. ANTIBIOTICS (NO INGREDIENTS/SUBSTANCES) [Suspect]
  4. MS CONTIN [Concomitant]
  5. CHEMOTHERAPEUTICS NOS (NO INGREDIENTS/SUBSTANCES) [Suspect]

REACTIONS (2)
  - RENAL FAILURE [None]
  - URINARY TRACT INFECTION [None]
